FAERS Safety Report 11455859 (Version 1)
Quarter: 2015Q3

REPORT INFORMATION
  Report Type: Report from Study
  Country: US (occurrence: US)
  Receive Date: 20150903
  Receipt Date: 20150903
  Transmission Date: 20151125
  Serious: Yes (Other)
  Sender: FDA-Public Use
  Company Number: US-ASTRAZENECA-2015SE84110

PATIENT
  Sex: Female

DRUGS (1)
  1. SEROQUEL XR [Suspect]
     Active Substance: QUETIAPINE FUMARATE
     Route: 048
     Dates: start: 201508, end: 201508

REACTIONS (5)
  - Hypotension [Unknown]
  - Generalised tonic-clonic seizure [Unknown]
  - Oesophageal disorder [Unknown]
  - Hepatic failure [Unknown]
  - Hypersomnia [Unknown]
